FAERS Safety Report 7339041-3 (Version None)
Quarter: 2011Q1

REPORT INFORMATION
  Report Type: 
  Country: None (occurrence: None)
  Receive Date: 20110308
  Receipt Date: 20110223
  Transmission Date: 20110831
  Serious: Yes (Hospitalization)
  Sender: FDA-Public Use
  Company Number: FR-ELI_LILLY_AND_COMPANY-FR201102007123

PATIENT
  Sex: Female

DRUGS (17)
  1. NOCTRAN 10 [Concomitant]
     Dates: end: 20081204
  2. TEMAZEPAM [Concomitant]
     Dates: start: 20081201
  3. XANAX [Concomitant]
     Dates: start: 20080301
  4. MONOCRIXO [Concomitant]
     Dates: start: 20080301
  5. NEXIUM [Concomitant]
     Dates: start: 20080301
  6. DOMPERIDONE [Concomitant]
     Dates: start: 20080401
  7. ABUFENE [Concomitant]
  8. ATHYMIL [Concomitant]
     Dosage: 30 MG, DAILY (1/D)
     Route: 048
     Dates: start: 20080301, end: 20090216
  9. MODOPAR [Concomitant]
     Dates: start: 20070101
  10. REQUIP [Concomitant]
     Dates: start: 20070101
  11. ACETAMINOPHEN [Concomitant]
  12. TARDYFERON [Concomitant]
     Indication: ANAEMIA
     Dates: start: 20081101
  13. SPECIAFOLDINE [Concomitant]
     Indication: ANAEMIA
     Dates: start: 20081101
  14. CYMBALTA [Suspect]
     Dosage: 1 D/F, DAILY (1/D)
     Route: 048
     Dates: start: 20080301, end: 20090216
  15. MIANSERIN [Concomitant]
     Dates: start: 20080301
  16. LYRICA [Concomitant]
     Dates: start: 20080301
  17. IMOVANE [Concomitant]
     Dates: start: 20081201

REACTIONS (1)
  - BONE MARROW FAILURE [None]
